FAERS Safety Report 24901896 (Version 2)
Quarter: 2025Q2

REPORT INFORMATION
  Report Type: Spontaneous
  Country: US (occurrence: US)
  Receive Date: 20250129
  Receipt Date: 20250516
  Transmission Date: 20250716
  Serious: No
  Sender: SANOFI AVENTIS
  Company Number: US-SA-2025SA027198

PATIENT
  Age: 33 Year
  Sex: Male

DRUGS (1)
  1. DUPIXENT [Suspect]
     Active Substance: DUPILUMAB
     Indication: Eosinophilic oesophagitis
     Dosage: 300 MG, QW
     Route: 058
     Dates: start: 202411

REACTIONS (5)
  - Dry throat [Unknown]
  - Vision blurred [Unknown]
  - Oropharyngeal pain [Unknown]
  - Dry eye [Unknown]
  - Injection site reaction [Unknown]

NARRATIVE: CASE EVENT DATE: 20241101
